FAERS Safety Report 8913911 (Version 3)
Quarter: 2013Q2

REPORT INFORMATION
  Report Type: Report from Study
  Country: US (occurrence: US)
  Receive Date: 20121119
  Receipt Date: 20130506
  Transmission Date: 20140414
  Serious: Yes (Hospitalization, Other)
  Sender: FDA-Public Use
  Company Number: US-ACTELION-A-US2012-73256

PATIENT
  Age: 62 Year
  Sex: Female

DRUGS (1)
  1. VELETRI [Suspect]
     Indication: PULMONARY ARTERIAL HYPERTENSION
     Dosage: 22 NG/KG, PER MIN
     Route: 042
     Dates: start: 20120120

REACTIONS (9)
  - Urinary tract infection [Unknown]
  - Pancreatic disorder [Unknown]
  - Chest pain [Unknown]
  - Fluid retention [Unknown]
  - Failure to thrive [Not Recovered/Not Resolved]
  - Hypovolaemic shock [Recovering/Resolving]
  - Dyspnoea [Not Recovered/Not Resolved]
  - Pulmonary hypertension [Recovering/Resolving]
  - Respiratory disorder [Recovering/Resolving]
